FAERS Safety Report 9831544 (Version 1)
Quarter: 2014Q1

REPORT INFORMATION
  Report Type: Spontaneous
  Country: IT (occurrence: IT)
  Receive Date: 20140121
  Receipt Date: 20140121
  Transmission Date: 20141002
  Serious: Yes (Life-Threatening, Hospitalization)
  Sender: FDA-Public Use
  Company Number: IT-TEVA-454913ISR

PATIENT
  Age: 40 Year
  Sex: Male
  Weight: 110 kg

DRUGS (6)
  1. RISPERIDONE [Suspect]
     Route: 048
  2. LORAZEPAM [Suspect]
     Route: 048
  3. BISOPROLOL [Suspect]
     Route: 048
  4. PHENOBARBITAL [Suspect]
     Route: 048
  5. CLOTIAZEPAM [Suspect]
     Route: 048
  6. OLANZAPINE [Concomitant]
     Dosage: 5 MILLIGRAM DAILY; 5 MG/DAY
     Route: 065

REACTIONS (3)
  - Stress cardiomyopathy [Recovered/Resolved]
  - Coma [Recovered/Resolved]
  - Suicide attempt [Recovered/Resolved]
